FAERS Safety Report 7334892-3 (Version None)
Quarter: 2011Q1

REPORT INFORMATION
  Report Type: 
  Country: None (occurrence: None)
  Receive Date: 20110307
  Receipt Date: 20110225
  Transmission Date: 20110831
  Serious: Yes (Hospitalization, Other)
  Sender: FDA-Public Use
  Company Number: CA-ROCHE-715697

PATIENT
  Sex: Female
  Weight: 73.9 kg

DRUGS (2)
  1. BEVACIZUMAB [Suspect]
     Indication: GLIOBLASTOMA
     Dosage: FORM: INFUSION
     Route: 042
     Dates: start: 20100625, end: 20101123
  2. CIPRALEX [Concomitant]

REACTIONS (4)
  - NEOPLASM [None]
  - VOMITING [None]
  - HEADACHE [None]
  - METASTASES TO LIVER [None]
